FAERS Safety Report 8699005 (Version 3)
Quarter: 2012Q4

REPORT INFORMATION
  Report Type: Report from Study
  Country: US (occurrence: US)
  Receive Date: 20120802
  Receipt Date: 20120920
  Transmission Date: 20130627
  Serious: Yes (Hospitalization)
  Sender: FDA-Public Use
  Company Number: US-JNJFOC-20120714576

PATIENT
  Age: 15 Year
  Sex: Male
  Weight: 49.8 kg

DRUGS (10)
  1. REMICADE [Suspect]
     Indication: COLITIS ULCERATIVE
     Route: 042
     Dates: start: 20111102, end: 20120329
  2. PREDNISONE [Concomitant]
  3. ACETAMINOPHEN [Concomitant]
  4. DIPHENHYDRAMINE [Concomitant]
  5. ERGOCALCIFEROL [Concomitant]
  6. FERROUS SULFATE [Concomitant]
  7. LANSOPRAZOLE [Concomitant]
  8. METHYLPREDNISOLONE [Concomitant]
  9. METRONIDAZOLE [Concomitant]
  10. POLYETHYLENE GLYCOL [Concomitant]

REACTIONS (1)
  - Colitis ulcerative [Recovered/Resolved]
